FAERS Safety Report 17159243 (Version 1)
Quarter: 2019Q4

REPORT INFORMATION
  Report Type: Spontaneous
  Country: US (occurrence: US)
  Receive Date: 20191215
  Receipt Date: 20191215
  Transmission Date: 20200122
  Serious: Yes (Hospitalization)
  Sender: FDA-Public Use
  Company Number: None

PATIENT
  Age: 9 Day
  Sex: Female
  Weight: 47.25 kg

DRUGS (3)
  1. EUTHYROX [Suspect]
     Active Substance: LEVOTHYROXINE SODIUM
     Indication: HYPOTHYROIDISM
     Dosage: ?          QUANTITY:1 TABLET(S);?
     Route: 048
     Dates: start: 20191112, end: 20191129
  2. LEVOTHYROXINE. [Concomitant]
     Active Substance: LEVOTHYROXINE
  3. CENTRUM WOMANS [Concomitant]

REACTIONS (4)
  - Chest pain [None]
  - Vein rupture [None]
  - Product substitution issue [None]
  - Tachycardia [None]

NARRATIVE: CASE EVENT DATE: 20191118
